FAERS Safety Report 21443378 (Version 2)
Quarter: 2022Q4

REPORT INFORMATION
  Report Type: Report from Study
  Country: CA (occurrence: CA)
  Receive Date: 20221012
  Receipt Date: 20221031
  Transmission Date: 20230112
  Serious: Yes (Other)
  Sender: FDA-Public Use
  Company Number: CA-CELLTRION INC.-2022CA016126

PATIENT

DRUGS (2)
  1. TRUXIMA [Suspect]
     Active Substance: RITUXIMAB-ABBS
     Indication: Nephrotic syndrome
     Dosage: 375 MG/M2 (BSA: 0.838 M2) = 300 MG PER DOSE, START WITH 2 DOSES, 1 WEEK APART (SOME PATIENTS REQUIRE
  2. TRUXIMA [Suspect]
     Active Substance: RITUXIMAB-ABBS
     Dosage: 375MG/M2 (BSA: 0.84M2)

REACTIONS (3)
  - Nephrotic syndrome [Unknown]
  - Inability to afford medication [Unknown]
  - Off label use [Unknown]
